FAERS Safety Report 24014190 (Version 1)
Quarter: 2024Q2

REPORT INFORMATION
  Report Type: Report from Study
  Country: GB (occurrence: GB)
  Receive Date: 20240626
  Receipt Date: 20240626
  Transmission Date: 20240716
  Serious: Yes (Hospitalization, Other)
  Sender: FDA-Public Use
  Company Number: GB-AUROBINDO-AUR-APL-2024-031446

PATIENT
  Age: 84 Year
  Sex: Male
  Weight: 85 kg

DRUGS (6)
  1. DONEPEZIL [Suspect]
     Active Substance: DONEPEZIL\DONEPEZIL HYDROCHLORIDE
     Indication: Dementia Alzheimer^s type
     Dosage: UNK
     Route: 048
  2. SEMAGLUTIDE [Suspect]
     Active Substance: SEMAGLUTIDE
     Indication: Dementia Alzheimer^s type
     Dosage: UNK
     Route: 048
     Dates: start: 20220803, end: 20231205
  3. SEMAGLUTIDE [Suspect]
     Active Substance: SEMAGLUTIDE
     Dosage: UNK
     Route: 048
     Dates: start: 20240111
  4. SEMAGLUTIDE [Suspect]
     Active Substance: SEMAGLUTIDE
     Dosage: UNK
     Route: 048
     Dates: start: 20220803, end: 20230102
  5. SEMAGLUTIDE [Suspect]
     Active Substance: SEMAGLUTIDE
     Dosage: UNK
     Route: 048
     Dates: start: 20230120, end: 20230602
  6. SEMAGLUTIDE [Suspect]
     Active Substance: SEMAGLUTIDE
     Dosage: UNK
     Route: 048
     Dates: start: 20231201, end: 20231205

REACTIONS (4)
  - Pneumonia aspiration [Recovered/Resolved]
  - Seizure [Recovered/Resolved]
  - Confusional state [Recovered/Resolved]
  - Pneumonia [Unknown]

NARRATIVE: CASE EVENT DATE: 20230103
